FAERS Safety Report 10676470 (Version 2)
Quarter: 2014Q4

REPORT INFORMATION
  Report Type: Spontaneous
  Country: US (occurrence: US)
  Receive Date: 20141226
  Receipt Date: 20141226
  Transmission Date: 20150529
  Serious: No
  Sender: FDA-Public Use
  Company Number: US-DRREDDYS-USA/USA/14/0041488

PATIENT
  Sex: Female

DRUGS (1)
  1. ZAFIRLUKAST TABLETS 10 MG + 20 MG [Suspect]
     Active Substance: ZAFIRLUKAST
     Indication: ASTHMA
     Route: 048

REACTIONS (2)
  - Product quality issue [Unknown]
  - Drug ineffective [Unknown]
